FAERS Safety Report 18939971 (Version 1)
Quarter: 2021Q1

REPORT INFORMATION
  Report Type: Spontaneous
  Country: US (occurrence: US)
  Receive Date: 20210224
  Receipt Date: 20210224
  Transmission Date: 20210420
  Serious: No
  Sender: FDA-Public Use
  Company Number: None

PATIENT
  Sex: Female

DRUGS (1)
  1. ENBREL [Suspect]
     Active Substance: ETANERCEPT
     Indication: RHEUMATOID ARTHRITIS
     Dosage: OTHER FREQUENCY:EVERY 7 DAYS;?ON HOLD
     Route: 058
     Dates: start: 20200930

REACTIONS (4)
  - Drug interaction [None]
  - Herpes zoster [None]
  - Therapy interrupted [None]
  - Alopecia [None]
